FAERS Safety Report 7819330-6 (Version None)
Quarter: 2011Q4

REPORT INFORMATION
  Report Type: 
  Country: None (occurrence: None)
  Receive Date: 20111018
  Receipt Date: 20110303
  Transmission Date: 20120403
  Serious: No
  Sender: FDA-Public Use
  Company Number: US-ASTRAZENECA-2011SE03248

PATIENT
  Age: 76 Year
  Sex: Female

DRUGS (4)
  1. PREDNISONE [Concomitant]
  2. AMOXICILLIN [Concomitant]
  3. SYMBICORT [Suspect]
     Indication: ASTHMA
     Dosage: 160/4.5 MCG TWO PUFFS ONCE AT NIGHT
     Route: 055
     Dates: start: 20100831
  4. ALBUTEROL [Concomitant]

REACTIONS (3)
  - MALAISE [None]
  - COUGH [None]
  - DRUG DOSE OMISSION [None]
